FAERS Safety Report 4592410-7 (Version None)
Quarter: 2005Q1

REPORT INFORMATION
  Report Type: 
  Country: None (occurrence: None)
  Receive Date: 20050228
  Receipt Date: 20050118
  Transmission Date: 20050727
  Serious: Yes (Other)
  Sender: FDA-Public Use
  Company Number: US-BRISTOL-MYERS SQUIBB COMPANY-12829081

PATIENT
  Sex: Female

DRUGS (4)
  1. ABILIFY [Suspect]
     Indication: BIPOLAR DISORDER
     Route: 048
  2. ABILIFY [Interacting]
     Indication: MANIA
     Route: 048
  3. PAXIL [Interacting]
  4. ZOLOFT [Concomitant]

REACTIONS (2)
  - DRUG INTERACTION [None]
  - MANIA [None]
